FAERS Safety Report 8957344 (Version 4)
Quarter: 2013Q3

REPORT INFORMATION
  Report Type: Spontaneous
  Country: US (occurrence: None)
  Receive Date: 20121128
  Receipt Date: 20130815
  Transmission Date: 20140515
  Serious: Yes (Hospitalization, Other)
  Sender: FDA-Public Use
  Company Number: ADR-2012-00914

PATIENT
  Age: 48 Year
  Sex: Male

DRUGS (3)
  1. BACLOFEN INTRATHECAL [Suspect]
     Indication: PAIN
  2. DILAUDID (HYDROMORPHONE) [Concomitant]
  3. CLONIDINE [Concomitant]

REACTIONS (23)
  - Drug withdrawal syndrome [None]
  - Chills [None]
  - Feeling hot [None]
  - Dehydration [None]
  - Blood pressure increased [None]
  - Anxiety [None]
  - Oedema peripheral [None]
  - Poor quality drug administered [None]
  - Drug ineffective [None]
  - Tooth loss [None]
  - Gait disturbance [None]
  - Oedema peripheral [None]
  - General physical health deterioration [None]
  - Pain [None]
  - Malaise [None]
  - Swelling [None]
  - Gait disturbance [None]
  - Therapeutic response unexpected [None]
  - Therapeutic response decreased [None]
  - Tremor [None]
  - Palpitations [None]
  - Upper limb fracture [None]
  - Limb injury [None]
